FAERS Safety Report 8006554-0 (Version None)
Quarter: 2011Q4

REPORT INFORMATION
  Report Type: 
  Country: None (occurrence: None)
  Receive Date: 20111227
  Receipt Date: 20111222
  Transmission Date: 20120403
  Serious: Yes (Other)
  Sender: FDA-Public Use
  Company Number: US-BRISTOL-MYERS SQUIBB COMPANY-16206302

PATIENT
  Age: 51 Year
  Sex: Male
  Weight: 87 kg

DRUGS (3)
  1. ALIMTA [Suspect]
     Indication: NON-SMALL CELL LUNG CANCER
     Dosage: DAY 1 OF 3 WEEK CYCLE LAST INF ON 01SEP2011.VIAL
     Route: 042
     Dates: start: 20110721
  2. RAMUCIRUMAB [Suspect]
     Indication: NON-SMALL CELL LUNG CANCER
     Dosage: DAY 1 OF 3 WEEK CYCLE LAST INF ON 01SEP2011.LIQIUD
     Route: 042
     Dates: start: 20110721
  3. CARBOPLATIN [Suspect]
     Indication: NON-SMALL CELL LUNG CANCER
     Dosage: 1 DF = 6 AUC
     Route: 042
     Dates: start: 20110721

REACTIONS (1)
  - MEDICATION ERROR [None]
